FAERS Safety Report 8580860-3 (Version None)
Quarter: 2012Q3

REPORT INFORMATION
  Report Type: 
  Country: None (occurrence: None)
  Receive Date: 20120809
  Receipt Date: 20120802
  Transmission Date: 20120928
  Serious: Yes (Other)
  Sender: FDA-Public Use
  Company Number: US-BAYER-2012-078882

PATIENT
  Age: 25 Year
  Sex: Female

DRUGS (1)
  1. MIRENA [Suspect]
     Indication: CONTRACEPTION
     Dosage: 20 ?G/D, UNK
     Route: 015
     Dates: start: 20120710

REACTIONS (6)
  - VAGINAL HAEMORRHAGE [None]
  - PROCEDURAL PAIN [None]
  - PALLOR [None]
  - PRESYNCOPE [None]
  - MENORRHAGIA [None]
  - POST PROCEDURAL HAEMORRHAGE [None]
